FAERS Safety Report 10173425 (Version 1)
Quarter: 2014Q2

REPORT INFORMATION
  Report Type: Spontaneous
  Country: US (occurrence: US)
  Receive Date: 20140515
  Receipt Date: 20140515
  Transmission Date: 20141212
  Serious: Yes (Hospitalization, Other)
  Sender: FDA-Public Use
  Company Number: US-TEVA-481344USA

PATIENT
  Sex: Female

DRUGS (1)
  1. METFORMIN [Suspect]

REACTIONS (8)
  - Cerebrovascular accident [Unknown]
  - Hemiplegia [Unknown]
  - Blood cholesterol increased [Unknown]
  - Renal disorder [Unknown]
  - Cystitis [Unknown]
  - Thrombosis [Unknown]
  - Renal mass [Unknown]
  - Feeling abnormal [Unknown]
